FAERS Safety Report 7309447-7 (Version None)
Quarter: 2011Q1

REPORT INFORMATION
  Report Type: 
  Country: None (occurrence: None)
  Receive Date: 20110223
  Receipt Date: 20101115
  Transmission Date: 20110831
  Serious: No
  Sender: FDA-Public Use
  Company Number: US-BIOGENIDEC-2010BI040245

PATIENT
  Age: 60 Year
  Sex: Male

DRUGS (3)
  1. TYSABRI [Suspect]
     Indication: MULTIPLE SCLEROSIS
     Route: 042
     Dates: start: 20080313
  2. AVONEX [Concomitant]
     Route: 030
     Dates: start: 20000717, end: 20051123
  3. AVONEX [Concomitant]
     Indication: MULTIPLE SCLEROSIS
     Route: 030
     Dates: start: 20070301

REACTIONS (1)
  - MUSCULAR WEAKNESS [None]
